FAERS Safety Report 13303437 (Version 1)
Quarter: 2017Q1

REPORT INFORMATION
  Report Type: Spontaneous
  Country: US (occurrence: US)
  Receive Date: 20170307
  Receipt Date: 20170307
  Transmission Date: 20170428
  Serious: Yes (Other)
  Sender: FDA-Public Use
  Company Number: US-ELI_LILLY_AND_COMPANY-US201607012861

PATIENT
  Sex: Female

DRUGS (9)
  1. DULOXETINE HYDROCHLORIDE. [Suspect]
     Active Substance: DULOXETINE HYDROCHLORIDE
     Indication: FIBROMYALGIA
     Dosage: 60 MG, 4 DAYS A WEEK
     Route: 048
  2. LYRICA [Concomitant]
     Active Substance: PREGABALIN
     Dosage: 225 MG, BID
     Route: 048
  3. CLONAZEPAN [Concomitant]
     Active Substance: CLONAZEPAM
     Dosage: 2 MG, BID
     Route: 048
  4. CYMBALTA [Suspect]
     Active Substance: DULOXETINE HYDROCHLORIDE
     Dosage: 60 MG, 5 DAYS A WEEK
     Route: 048
  5. LEXAPRO [Concomitant]
     Active Substance: ESCITALOPRAM OXALATE
     Indication: FIBROMYALGIA
     Dosage: 20 MG, THREE DAYS A WEEK
     Route: 065
  6. CLONAZEPAN [Concomitant]
     Active Substance: CLONAZEPAM
     Indication: ANXIETY
     Dosage: 2 MG, QD
     Route: 048
  7. LYRICA [Concomitant]
     Active Substance: PREGABALIN
     Indication: FIBROMYALGIA
     Dosage: 225 MG, QD
     Route: 048
  8. CYMBALTA [Suspect]
     Active Substance: DULOXETINE HYDROCHLORIDE
     Indication: FIBROMYALGIA
     Dosage: 60 MG, 4 DAYS A WEEK
     Route: 048
  9. DULOXETINE HYDROCHLORIDE. [Suspect]
     Active Substance: DULOXETINE HYDROCHLORIDE
     Dosage: 60 MG, 5 DAYS A WEEK
     Route: 048

REACTIONS (27)
  - Dysphoria [Unknown]
  - Paraesthesia [Unknown]
  - Vomiting [Unknown]
  - Lethargy [Unknown]
  - Nausea [Unknown]
  - Anxiety [Unknown]
  - Confusional state [Unknown]
  - Irritability [Unknown]
  - Insomnia [Unknown]
  - Depression [Unknown]
  - Hot flush [Unknown]
  - Suicidal ideation [Unknown]
  - Hyperhidrosis [Unknown]
  - Anger [Unknown]
  - Intentional product misuse [Unknown]
  - Drug withdrawal syndrome [Unknown]
  - Fatigue [Unknown]
  - Agitation [Unknown]
  - Dizziness [Unknown]
  - Headache [Unknown]
  - Abdominal pain [Unknown]
  - Rash [Unknown]
  - Pain in extremity [Unknown]
  - Diarrhoea [Unknown]
  - Affect lability [Unknown]
  - Myalgia [Unknown]
  - Arthralgia [Unknown]
